FAERS Safety Report 4469115-6 (Version None)
Quarter: 2004Q4

REPORT INFORMATION
  Report Type: 
  Country: None (occurrence: None)
  Receive Date: 20041001
  Receipt Date: 20040920
  Transmission Date: 20050328
  Serious: Yes (Other)
  Sender: FDA-Public Use
  Company Number: S04-USA-05564-01

PATIENT
  Age: 23 Year
  Sex: Female

DRUGS (2)
  1. LEXAPRO [Suspect]
     Dosage: 10 MG QD PO
     Route: 048
     Dates: start: 20040401, end: 20040816
  2. METHAMPHETAMINES [Concomitant]

REACTIONS (11)
  - ABORTION SPONTANEOUS [None]
  - ANTEPARTUM HAEMORRHAGE [None]
  - ASTHENIA [None]
  - BLOOD HUMAN CHORIONIC GONADOTROPIN DECREASED [None]
  - BLOOD THYROID STIMULATING HORMONE DECREASED [None]
  - DRUG EXPOSURE DURING PREGNANCY [None]
  - PREGNANCY [None]
  - RESPIRATORY RATE INCREASED [None]
  - STRESS SYMPTOMS [None]
  - TOBACCO ABUSE [None]
  - VAGINAL HAEMORRHAGE [None]
